FAERS Safety Report 4845583-2 (Version None)
Quarter: 2005Q4

REPORT INFORMATION
  Report Type: 
  Country: None (occurrence: None)
  Receive Date: 20051205
  Receipt Date: 20051005
  Transmission Date: 20060501
  Serious: Yes (Hospitalization)
  Sender: FDA-Public Use
  Company Number: US-MERCK-0510USA04284

PATIENT
  Age: 51 Year
  Sex: Female
  Weight: 77 kg

DRUGS (4)
  1. VIOXX [Suspect]
     Indication: ARTHRALGIA
     Route: 048
     Dates: start: 20040427, end: 20040901
  2. PERCOCET [Concomitant]
     Route: 065
  3. VICODIN [Concomitant]
     Route: 065
  4. [THERAPY UNSPECIFIED] [Concomitant]
     Route: 065

REACTIONS (12)
  - ACUTE CORONARY SYNDROME [None]
  - ANAEMIA [None]
  - ANGINA UNSTABLE [None]
  - ARTERIAL OCCLUSIVE DISEASE [None]
  - ARTHROPATHY [None]
  - BLOOD POTASSIUM DECREASED [None]
  - DRUG HYPERSENSITIVITY [None]
  - HYPERCHOLESTEROLAEMIA [None]
  - LOWER GASTROINTESTINAL HAEMORRHAGE [None]
  - MYOCARDIAL INFARCTION [None]
  - PERIPHERAL ISCHAEMIA [None]
  - PERIPHERAL VASCULAR DISORDER [None]
